FAERS Safety Report 23557856 (Version 2)
Quarter: 2024Q1

REPORT INFORMATION
  Report Type: Other
  Country: US (occurrence: None)
  Receive Date: 20240223
  Receipt Date: 20240306
  Transmission Date: 20240409
  Serious: Yes (Other)
  Sender: FDA-Public Use
  Company Number: US-ROCHE-3508713

PATIENT
  Age: 70 Year
  Sex: Female
  Weight: 59 kg

DRUGS (24)
  1. ACTEMRA [Suspect]
     Active Substance: TOCILIZUMAB
     Indication: Rheumatoid arthritis
     Route: 058
     Dates: end: 202310
  2. ACTEMRA [Suspect]
     Active Substance: TOCILIZUMAB
  3. ACTEMRA [Suspect]
     Active Substance: TOCILIZUMAB
     Indication: Rheumatoid arthritis
     Route: 058
  4. ACTEMRA [Suspect]
     Active Substance: TOCILIZUMAB
  5. ACTEMRA [Suspect]
     Active Substance: TOCILIZUMAB
  6. ACTEMRA [Suspect]
     Active Substance: TOCILIZUMAB
     Indication: Autoimmune disorder
  7. ACTEMRA [Suspect]
     Active Substance: TOCILIZUMAB
  8. ACTEMRA [Suspect]
     Active Substance: TOCILIZUMAB
  9. XANAX [Concomitant]
     Active Substance: ALPRAZOLAM
     Indication: Anxiety
     Dosage: TAKE 1 MG BY MOUTH EVERY 6 HOURS AS NEEDED FOR ANXIETY. INDICATIONS: FEELING ANXIOUS - ORAL
     Route: 048
  10. ELIQUIS [Concomitant]
     Active Substance: APIXABAN
     Route: 048
  11. SOMA [Concomitant]
     Active Substance: CARISOPRODOL
     Indication: Musculoskeletal pain
     Dosage: TAKE 350 MG 3 TIMES DAILY AS NEEDED BY MOUTH FOR MUSCLE SPASMS INDICATIONS: MUSCULOSKELETAL PAIN - O
     Route: 048
  12. SOMA [Concomitant]
     Active Substance: CARISOPRODOL
     Indication: Muscle spasms
  13. COLACE [Concomitant]
     Active Substance: DOCUSATE SODIUM
     Indication: Constipation
     Dosage: TAKE 100 MG BY MOUTH 2 TIMES DAILY, HOLD FOR LOOSE STOOLS INDICATIONS: CONSTIPATION - ORAL
     Route: 048
     Dates: start: 20231025
  14. JARDIANCE [Concomitant]
     Active Substance: EMPAGLIFLOZIN
     Dosage: TAKE 10 MG BY MOUTH - ORAL
     Route: 048
  15. PROZAC [Concomitant]
     Active Substance: FLUOXETINE HYDROCHLORIDE
     Indication: Generalised anxiety disorder
     Route: 048
  16. ALDARA [Concomitant]
     Active Substance: IMIQUIMOD
     Dosage: APPLY 1 EACH 2 TIMES A WEEK (MONDAY + FRIDAY) TOPICALLY APPLY TO LESIONS ON R/L LOWER LEGS INDICATIO
     Route: 065
     Dates: start: 20231025
  17. MORPHINE SULFATE [Concomitant]
     Active Substance: MORPHINE SULFATE
     Dosage: TAKE 100 MG 2 TIMES DAILY BY MOUTH TAKE WITH THE 15 MG ER TABLETS INDICATIONS: PAIN, RELATED TO RA
     Route: 048
  18. MORPHINE SULFATE [Concomitant]
     Active Substance: MORPHINE SULFATE
     Dosage: TAKE 15 MG 2 TIMES DAILY BY MOUTH TAKE WITH THE 100 MG INDICATIONS: PAIN, RELATED TO RA - ORAL
     Route: 048
  19. BACTROBAN [Concomitant]
     Active Substance: MUPIROCIN CALCIUM
     Dosage: APPLY 1 EACH 2 TIMES DAILY TOPICALLY APPLY TO LESIONS ON R/L LOWER LEGS INDICATIONS: WOUND INFECTION
     Route: 061
  20. OXYCODONE [Concomitant]
     Active Substance: OXYCODONE\OXYCODONE HYDROCHLORIDE
     Dosage: TAKE 30 MG EVERY 4 HOURS AS NEEDED BY MOUTH FOR PAIN INDICATIONS: CHRONIC PAIN - ORAL
     Route: 048
  21. PROTONIX [Concomitant]
     Active Substance: PANTOPRAZOLE SODIUM
     Dosage: TAKE 40 MG 2 TIMES DAILY BY MOUTH INDICATIONS: GASTROESOPHAGEAL REFLUX DISEASE - ORAL
     Route: 048
  22. PRAVACHOL [Concomitant]
     Active Substance: PRAVASTATIN SODIUM
     Dosage: TAKE 20 MG DAILY AT 6PM BY MOUTH INDICATIONS: HIGH AMOUNT OF FATS IN THE BLOOD - ORAL
     Route: 048
  23. PREDNISOLONE [Concomitant]
     Active Substance: PREDNISOLONE
     Dosage: TAKE 1 TABLET DAILY
     Route: 065
     Dates: start: 20240219
  24. ENTRESTO [Concomitant]
     Active Substance: SACUBITRIL\VALSARTAN
     Dosage: TAKE 1 TABLET EVERY 12 HOURS BY MOUTH INDICATIONS: CONGESTIVE HEART FAILURE - ORAL
     Route: 048

REACTIONS (1)
  - Myocardial infarction [Unknown]

NARRATIVE: CASE EVENT DATE: 20231001
